FAERS Safety Report 18763138 (Version 1)
Quarter: 2021Q1

REPORT INFORMATION
  Report Type: Spontaneous
  Country: US (occurrence: US)
  Receive Date: 20210120
  Receipt Date: 20210120
  Transmission Date: 20210419
  Serious: Yes (Hospitalization)
  Sender: FDA-Public Use
  Company Number: None

PATIENT
  Sex: Female

DRUGS (1)
  1. SPRAVATO [Suspect]
     Active Substance: ESKETAMINE
     Indication: MAJOR DEPRESSION
     Dosage: ?          OTHER FREQUENCY:TWICE A WEEK;?
     Route: 045

REACTIONS (6)
  - Product supply issue [None]
  - Stress [None]
  - Intentional self-injury [None]
  - Insurance issue [None]
  - Inappropriate schedule of product administration [None]
  - Product dispensing issue [None]
